FAERS Safety Report 18029630 (Version 1)
Quarter: 2020Q3

REPORT INFORMATION
  Report Type: Other
  Country: FR (occurrence: FR)
  Receive Date: 20200714
  Receipt Date: 20200714
  Transmission Date: 20201103
  Serious: Yes (Other)
  Sender: FDA-Public Use
  Company Number: FR-CADILA HEALTHCARE LIMITED-FR-ZYDUS-049931

PATIENT

DRUGS (15)
  1. PHENERGAN [Suspect]
     Active Substance: PROMETHAZINE HYDROCHLORIDE
     Indication: PRODUCT ADMINISTRATION ERROR
     Dosage: 50 MILLIGRAM (1 TOTAL)
     Route: 048
     Dates: start: 20191227, end: 20191227
  2. PRAVASTATINE SODIUM ACCORD [Concomitant]
     Active Substance: PRAVASTATIN SODIUM
     Indication: PRODUCT USED FOR UNKNOWN INDICATION
     Dosage: UNADMINISTERED MEDICATION
     Route: 048
  3. LOXAPAC [LOXAPINE SUCCINATE] [Suspect]
     Active Substance: LOXAPINE SUCCINATE
     Indication: PRODUCT ADMINISTRATION ERROR
     Dosage: 25 MILLIGRAM (1 TOTAL)
     Route: 048
     Dates: start: 20191227, end: 20191227
  4. LEPTICUR [Concomitant]
     Active Substance: TROPATEPINE HYDROCHLORIDE
     Indication: PRODUCT USED FOR UNKNOWN INDICATION
     Dosage: UNADMINISTERED MEDICATION
     Route: 048
  5. DIPIPERON [Concomitant]
     Active Substance: PIPAMPERONE
     Indication: AUTISM SPECTRUM DISORDER
     Dosage: UNADMINISTERED MEDICATION
     Route: 048
     Dates: start: 20191127
  6. SULFARLEM S [Concomitant]
     Active Substance: ANETHOLTRITHION
     Indication: PARKINSONISM
     Dosage: UNADMINISTERED MEDICATION
     Route: 048
  7. TEGRETOL [Suspect]
     Active Substance: CARBAMAZEPINE
     Indication: PRODUCT USED FOR UNKNOWN INDICATION
     Dosage: 400 MILLIGRAM (1 TOTAL)
     Route: 048
     Dates: start: 20191227, end: 20191227
  8. GUTRON [Suspect]
     Active Substance: MIDODRINE HYDROCHLORIDE
     Indication: PRODUCT ADMINISTRATION ERROR
     Dosage: 2.5 MILLIGRAM (1 TOTAL)
     Route: 048
     Dates: start: 20191227, end: 20191227
  9. ACIDE VALPROIQUE [Concomitant]
     Active Substance: VALPROIC ACID
     Indication: AUTISM SPECTRUM DISORDER
     Dosage: UNK (UNADMINISTERED MEDICATION)
     Route: 048
  10. RISPERIDONE. [Concomitant]
     Active Substance: RISPERIDONE
     Indication: AUTISM SPECTRUM DISORDER
     Dosage: UNADMINISTERED MEDICATION
     Route: 048
  11. ROSUVASTATIN. [Suspect]
     Active Substance: ROSUVASTATIN
     Indication: PRODUCT ADMINISTRATION ERROR
     Dosage: 5 MILLIGRAM (1 TOTAL)
     Route: 048
     Dates: start: 20191227, end: 20191227
  12. DESLORATADINE. [Suspect]
     Active Substance: DESLORATADINE
     Indication: PRODUCT ADMINISTRATION ERROR
     Dosage: UNK
     Route: 048
     Dates: start: 20191227, end: 20191227
  13. NOZINAN [LEVOMEPROMAZINE HYDROCHLORIDE] [Concomitant]
     Active Substance: LEVOMEPROMAZINE HYDROCHLORIDE
     Indication: AUTISM SPECTRUM DISORDER
     Dosage: (UNADMINISTERED MEDICATION)
     Route: 048
  14. TRANXENE [Suspect]
     Active Substance: CLORAZEPATE DIPOTASSIUM
     Indication: PRODUCT ADMINISTRATION ERROR
     Dosage: 10 MILLIGRAM (1 TOTAL)
     Route: 048
     Dates: start: 20191227, end: 20191227
  15. HALOPERIDOL. [Suspect]
     Active Substance: HALOPERIDOL
     Indication: PRODUCT ADMINISTRATION ERROR
     Dosage: 10 MILLIGRAM, QD
     Route: 048
     Dates: start: 20191227, end: 20191227

REACTIONS (7)
  - Product administration error [Recovered/Resolved]
  - Toxic skin eruption [Recovered/Resolved]
  - Wrong product administered [Recovered/Resolved]
  - Wrong patient received product [Recovered/Resolved]
  - Rash maculo-papular [Recovered/Resolved]
  - Pruritus [Recovered/Resolved]
  - Dermatitis bullous [Recovered/Resolved]

NARRATIVE: CASE EVENT DATE: 20191227
